FAERS Safety Report 6811393-X (Version None)
Quarter: 2010Q2

REPORT INFORMATION
  Report Type: 
  Country: None (occurrence: None)
  Receive Date: 20100630
  Receipt Date: 20100331
  Transmission Date: 20101027
  Serious: No
  Sender: FDA-Public Use
  Company Number: US-AMGEN-KDL403246

PATIENT
  Sex: Female
  Weight: 65.8 kg

DRUGS (14)
  1. PROCRIT [Suspect]
     Indication: RENAL FAILURE CHRONIC
     Dates: start: 20090301
  2. PLAVIX [Concomitant]
  3. ASPIRIN [Concomitant]
  4. VERAPAMIL [Concomitant]
  5. LISINOPRIL [Concomitant]
  6. VITAMIN D [Concomitant]
  7. CALCITRIOL [Concomitant]
  8. GEMFIBROZIL [Concomitant]
  9. NICOTINE [Concomitant]
  10. COMBIVENT [Concomitant]
  11. AMBIEN [Concomitant]
  12. UNSPECIFIED MEDICATION [Concomitant]
  13. LASIX [Concomitant]
  14. LOVASTATIN [Concomitant]

REACTIONS (1)
  - HAEMATOCRIT DECREASED [None]
